FAERS Safety Report 24045018 (Version 1)
Quarter: 2024Q3

REPORT INFORMATION
  Report Type: Report from Study
  Country: US (occurrence: US)
  Receive Date: 20240703
  Receipt Date: 20240703
  Transmission Date: 20241016
  Serious: Yes (Death)
  Sender: ROCHE
  Company Number: US-ROCHE-10000003695

PATIENT
  Age: 29 Year
  Sex: Male

DRUGS (7)
  1. PULMOZYME [Suspect]
     Active Substance: DORNASE ALFA
     Indication: Respiratory failure
     Route: 055
  2. PULMOZYME [Suspect]
     Active Substance: DORNASE ALFA
     Indication: Tracheostomy
  3. PULMOZYME [Suspect]
     Active Substance: DORNASE ALFA
     Indication: Chronic respiratory failure
  4. PULMOZYME [Suspect]
     Active Substance: DORNASE ALFA
     Indication: Hypercapnia
  5. PULMOZYME [Suspect]
     Active Substance: DORNASE ALFA
     Indication: Mechanical ventilation
  6. PULMOZYME [Suspect]
     Active Substance: DORNASE ALFA
     Indication: Acute respiratory failure
  7. PULMOZYME [Suspect]
     Active Substance: DORNASE ALFA
     Indication: Scoliosis

REACTIONS (2)
  - Death [Fatal]
  - Off label use [Unknown]
